FAERS Safety Report 20119280 (Version 1)
Quarter: 2021Q4

REPORT INFORMATION
  Report Type: Other
  Country: EG (occurrence: None)
  Receive Date: 20211126
  Receipt Date: 20211126
  Transmission Date: 20220303
  Serious: Yes (Other)
  Sender: FDA-Public Use
  Company Number: EG-ROCHE-2959733

PATIENT

DRUGS (4)
  1. RIBAVIRIN [Suspect]
     Active Substance: RIBAVIRIN
     Indication: Chronic hepatitis C
     Route: 065
  2. SOFOSBUVIR [Suspect]
     Active Substance: SOFOSBUVIR
     Indication: Chronic hepatitis C
     Route: 065
  3. DACLATASVIR [Suspect]
     Active Substance: DACLATASVIR
     Indication: Chronic hepatitis C
     Route: 065
  4. SIMEPREVIR [Suspect]
     Active Substance: SIMEPREVIR
     Indication: Chronic hepatitis C
     Route: 065

REACTIONS (3)
  - Portal vein thrombosis [Unknown]
  - Anaemia [Unknown]
  - Thrombocytopenia [Unknown]
